FAERS Safety Report 7747894-X (Version None)
Quarter: 2011Q3

REPORT INFORMATION
  Report Type: 
  Country: None (occurrence: None)
  Receive Date: 20110913
  Receipt Date: 20110901
  Transmission Date: 20111222
  Serious: Yes (Hospitalization)
  Sender: FDA-Public Use
  Company Number: US-JNJFOC-20110902247

PATIENT
  Sex: Female
  Weight: 44.9 kg

DRUGS (5)
  1. INFLIXIMAB, RECOMBINANT [Suspect]
     Indication: INFLAMMATORY BOWEL DISEASE
     Route: 042
  2. VITAMIN B6 [Concomitant]
  3. CLARITIN [Concomitant]
     Indication: MULTIPLE ALLERGIES
  4. BENADRYL [Concomitant]
     Indication: MULTIPLE ALLERGIES
  5. MULTIVITAMIN [Concomitant]

REACTIONS (2)
  - DEHYDRATION [None]
  - GASTROENTERITIS VIRAL [None]
